FAERS Safety Report 7833691-3 (Version None)
Quarter: 2011Q4

REPORT INFORMATION
  Report Type: 
  Country: None (occurrence: None)
  Receive Date: 20111024
  Receipt Date: 20111017
  Transmission Date: 20120403
  Serious: Yes (Other)
  Sender: FDA-Public Use
  Company Number: US-SANOFI-AVENTIS-2011SA069639

PATIENT
  Age: 60 Year
  Sex: Male

DRUGS (13)
  1. COUMADIN [Concomitant]
  2. COREG [Concomitant]
  3. MULTAQ [Suspect]
     Indication: ATRIAL FIBRILLATION
     Route: 048
     Dates: start: 20101214, end: 20111014
  4. LISINOPRIL [Concomitant]
  5. DABIGATRAN ETEXILATE [Concomitant]
     Route: 048
     Dates: start: 20110323
  6. PREDNISONE [Concomitant]
     Indication: PERICARDITIS
  7. IMDUR [Concomitant]
  8. AMIODARONE HCL [Concomitant]
     Indication: ATRIAL FIBRILLATION
     Dates: start: 20101118, end: 20101213
  9. PLAVIX [Concomitant]
  10. ASPIRIN [Concomitant]
  11. PREDNISONE [Concomitant]
  12. CARDIZEM [Concomitant]
  13. PRAVASTATIN [Concomitant]

REACTIONS (3)
  - ATRIAL FIBRILLATION [None]
  - EJECTION FRACTION DECREASED [None]
  - GAIT DISTURBANCE [None]
